FAERS Safety Report 6560620-5 (Version None)
Quarter: 2010Q1

REPORT INFORMATION
  Report Type: 
  Country: None (occurrence: None)
  Receive Date: 20100129
  Receipt Date: 20090916
  Transmission Date: 20100710
  Serious: No
  Sender: FDA-Public Use
  Company Number: US-ABBOTT-09P-163-0598364-00

PATIENT
  Sex: Female
  Weight: 64.922 kg

DRUGS (4)
  1. HUMIRA [Suspect]
     Indication: CROHN'S DISEASE
     Dosage: 160MG; 4 IN 1 DAY
     Route: 058
     Dates: start: 20090728, end: 20090728
  2. HUMIRA [Suspect]
     Dosage: 80MG; 2 IN 1 DAY
     Route: 058
     Dates: start: 20090811, end: 20090811
  3. HUMIRA [Suspect]
     Route: 058
     Dates: start: 20090825, end: 20090908
  4. ASACOL [Concomitant]
     Indication: CROHN'S DISEASE

REACTIONS (2)
  - CELLULITIS [None]
  - OEDEMA GENITAL [None]
